FAERS Safety Report 20802929 (Version 1)
Quarter: 2022Q2

REPORT INFORMATION
  Report Type: Spontaneous
  Country: US (occurrence: US)
  Receive Date: 20220509
  Receipt Date: 20220509
  Transmission Date: 20220721
  Serious: No
  Sender: FDA-Public Use
  Company Number: US-BAUSCH-BL-2022-010726

PATIENT
  Age: 31 Year
  Sex: Female

DRUGS (2)
  1. VITRASE [Suspect]
     Active Substance: HYALURONIDASE, OVINE
     Indication: Lip cosmetic procedure
     Dosage: AS DIRECTED
     Route: 050
     Dates: start: 20220413, end: 20220413
  2. VITRASE [Suspect]
     Active Substance: HYALURONIDASE, OVINE
     Indication: Off label use
     Dosage: AS DIRECTED
     Route: 050
     Dates: start: 20220419, end: 20220419

REACTIONS (11)
  - Paraesthesia oral [Not Recovered/Not Resolved]
  - Injection site mass [Unknown]
  - Injection site nodule [Unknown]
  - Injection site swelling [Unknown]
  - Paraesthesia [Not Recovered/Not Resolved]
  - Pain [Unknown]
  - Injection site pain [Unknown]
  - Skin indentation [Unknown]
  - Pain in jaw [Not Recovered/Not Resolved]
  - Neck pain [Not Recovered/Not Resolved]
  - Off label use [Unknown]

NARRATIVE: CASE EVENT DATE: 20220401
